FAERS Safety Report 6020474-2 (Version None)
Quarter: 2008Q4

REPORT INFORMATION
  Report Type: 
  Country: None (occurrence: None)
  Receive Date: 20081222
  Receipt Date: 20081204
  Transmission Date: 20090506
  Serious: Yes (Hospitalization)
  Sender: FDA-Public Use
  Company Number: 1000003155

PATIENT
  Age: 82 Year
  Sex: Female

DRUGS (6)
  1. MEMANTINE HCL [Suspect]
     Dosage: 20 MG (10 MG, 2 IN 1 D),ORAL
     Route: 048
     Dates: end: 20080718
  2. TIAPRIDAL (DROPS(FOR ORAL USE)) [Suspect]
     Dosage: 45 MG (45 MG, 1 IN 1 D), ORAL
     Route: 048
     Dates: end: 20080718
  3. FORLAX [Concomitant]
  4. AMLOR (CAPSULES) [Concomitant]
  5. OMEPRAZOLE [Concomitant]
  6. IMOVANE (TABLETS) [Concomitant]

REACTIONS (4)
  - FLATULENCE [None]
  - INTESTINAL DILATATION [None]
  - MEGACOLON [None]
  - SUBILEUS [None]
